FAERS Safety Report 9757096 (Version 2)
Quarter: 2014Q1

REPORT INFORMATION
  Report Type: Spontaneous
  Country: US (occurrence: US)
  Receive Date: 20131213
  Receipt Date: 20140110
  Transmission Date: 20141002
  Serious: Yes (Hospitalization)
  Sender: FDA-Public Use
  Company Number: US-MPIJNJ-2013MPI001269

PATIENT
  Age: 70 Year
  Sex: Female

DRUGS (2)
  1. VELCADE [Suspect]
     Indication: PLASMA CELL MYELOMA
     Dosage: 1 MG, Q2WEEKS
     Route: 042
     Dates: start: 20110908, end: 20120918
  2. DECADRON /00016001/ [Suspect]
     Indication: PLASMA CELL MYELOMA

REACTIONS (1)
  - Thrombocytopenia [Recovered/Resolved]
